FAERS Safety Report 8091351-0 (Version None)
Quarter: 2012Q1

REPORT INFORMATION
  Report Type: 
  Country: None (occurrence: None)
  Receive Date: 20120131
  Receipt Date: 20120123
  Transmission Date: 20120608
  Serious: Yes (Other)
  Sender: FDA-Public Use
  Company Number: US-US-EMD SERONO, INC.-7104560

PATIENT
  Sex: Female

DRUGS (6)
  1. LITHIUM CARBONATE [Concomitant]
     Dates: start: 20070101
  2. REBIF [Suspect]
     Route: 058
     Dates: start: 20120101
  3. KLONOPIN [Concomitant]
     Dates: start: 20070101
  4. DEPAKOTE [Concomitant]
     Dates: start: 20070101
  5. SEROQUEL [Concomitant]
     Dates: start: 20070101
  6. REBIF [Suspect]
     Indication: MULTIPLE SCLEROSIS
     Route: 058
     Dates: start: 20111222

REACTIONS (5)
  - FATIGUE [None]
  - KIDNEY INFECTION [None]
  - BACK PAIN [None]
  - DEPRESSION [None]
  - INFLUENZA LIKE ILLNESS [None]
